FAERS Safety Report 9345223 (Version 1)
Quarter: 2013Q2

REPORT INFORMATION
  Report Type: Spontaneous
  Country: US (occurrence: US)
  Receive Date: 20130612
  Receipt Date: 20130612
  Transmission Date: 20140414
  Serious: Yes (Other)
  Sender: FDA-Public Use
  Company Number: US-RB-054793-13

PATIENT
  Age: 56 Year
  Sex: Female

DRUGS (1)
  1. SUBOXONE FILM [Suspect]
     Indication: PRODUCT USED FOR UNKNOWN INDICATION
     Dosage: SUBOXONE FILM; DOSAGE DETAILS UNKNOWN
     Route: 065

REACTIONS (2)
  - Road traffic accident [Recovered/Resolved]
  - Rib fracture [Recovered/Resolved]
